FAERS Safety Report 8830126 (Version 2)
Quarter: 2012Q4

REPORT INFORMATION
  Report Type: 
  Country: FI (occurrence: FI)
  Receive Date: 20121008
  Receipt Date: 20121015
  Transmission Date: 20130627
  Serious: Yes (Hospitalization, Disabling, Other)
  Sender: FDA-Public Use
  Company Number: FI-ABBOTT-12P-055-0987096-00

PATIENT
  Age: 61 None
  Sex: Male

DRUGS (15)
  1. HUMIRA [Suspect]
     Indication: PSORIATIC ARTHROPATHY
     Route: 058
     Dates: start: 20081211
  2. PREDNISOLONE [Concomitant]
     Indication: PRODUCT USED FOR UNKNOWN INDICATION
     Route: 048
  3. TREXAN [Concomitant]
     Indication: PRODUCT USED FOR UNKNOWN INDICATION
     Route: 048
  4. SALAZOPYRIN [Concomitant]
     Indication: PRODUCT USED FOR UNKNOWN INDICATION
     Dosage: 1000 EN
     Route: 048
  5. MAREVAN [Concomitant]
     Indication: PRODUCT USED FOR UNKNOWN INDICATION
  6. PERINDOPRIL [Concomitant]
     Indication: PRODUCT USED FOR UNKNOWN INDICATION
  7. VOLTAREN [Concomitant]
     Indication: PRODUCT USED FOR UNKNOWN INDICATION
  8. METOHEXAL [Concomitant]
     Indication: PRODUCT USED FOR UNKNOWN INDICATION
  9. AMLODIPIN [Concomitant]
     Indication: PRODUCT USED FOR UNKNOWN INDICATION
  10. NEURAMIN [Concomitant]
     Indication: PRODUCT USED FOR UNKNOWN INDICATION
     Route: 030
  11. SOMAC [Concomitant]
     Indication: PRODUCT USED FOR UNKNOWN INDICATION
  12. MAGNESIUM [Concomitant]
     Indication: PRODUCT USED FOR UNKNOWN INDICATION
  13. FOLIC ACID [Concomitant]
     Indication: PRODUCT USED FOR UNKNOWN INDICATION
  14. OMEPRAZOLE [Concomitant]
     Indication: PRODUCT USED FOR UNKNOWN INDICATION
  15. CIALIS [Concomitant]
     Indication: PRODUCT USED FOR UNKNOWN INDICATION

REACTIONS (20)
  - Muscular weakness [Recovered/Resolved with Sequelae]
  - Amyotrophic lateral sclerosis [Recovered/Resolved with Sequelae]
  - Dyspnoea [Unknown]
  - Hyperreflexia [Unknown]
  - Dyspnoea [Unknown]
  - Tongue atrophy [Unknown]
  - General physical health deterioration [Unknown]
  - Gait disturbance [Unknown]
  - Weight decreased [Unknown]
  - Muscle fatigue [Unknown]
  - Nocturnal dyspnoea [Unknown]
  - Poor quality sleep [Unknown]
  - Decreased appetite [Unknown]
  - Hyponatraemia [Unknown]
  - Hypoaesthesia [Unknown]
  - Kyphosis [Unknown]
  - Back disorder [Unknown]
  - Muscular weakness [Unknown]
  - Hypercapnia [Unknown]
  - Aspartate aminotransferase increased [Unknown]
